FAERS Safety Report 4367248-6 (Version None)
Quarter: 2004Q2

REPORT INFORMATION
  Report Type: 
  Country: None (occurrence: None)
  Receive Date: 20040524
  Receipt Date: 20040512
  Transmission Date: 20050107
  Serious: Yes (Hospitalization)
  Sender: FDA-Public Use
  Company Number: ZONI001419

PATIENT
  Age: 7 Year
  Sex: Female
  Weight: 23 kg

DRUGS (1)
  1. ZONISAMIDE (ZONISAMIDE) [Suspect]
     Indication: ACQUIRED EPILEPTIC APHASIA
     Dosage: 100 MG DAILY ORAL
     Route: 048

REACTIONS (2)
  - ELECTROENCEPHALOGRAM ABNORMAL [None]
  - HALLUCINATION, VISUAL [None]
